FAERS Safety Report 16139326 (Version 2)
Quarter: 2019Q2

REPORT INFORMATION
  Report Type: Spontaneous
  Country: US (occurrence: US)
  Receive Date: 20190401
  Receipt Date: 20190516
  Transmission Date: 20190711
  Serious: Yes (Other)
  Sender: FDA-Public Use
  Company Number: US-LUPIN HEALTHCARE (UK) LIMITED-2019-01796

PATIENT
  Age: 75 Year
  Sex: Male
  Weight: 61.22 kg

DRUGS (1)
  1. CEPHALEXIN CAPSULES USP, 500 MG [Suspect]
     Active Substance: CEPHALEXIN
     Indication: PROSTATIC DISORDER
     Dosage: 500 MILLIGRAM, BID
     Route: 048
     Dates: start: 201901, end: 201901

REACTIONS (9)
  - Penile swelling [Recovered/Resolved]
  - Prostatic pain [Recovered/Resolved]
  - Prostatic disorder [Recovered/Resolved]
  - Product use in unapproved indication [Unknown]
  - Gastrointestinal disorder [Recovered/Resolved]
  - Testicular swelling [Recovered/Resolved]
  - Gastrointestinal oedema [Recovered/Resolved]
  - Faeces discoloured [Not Recovered/Not Resolved]
  - Constipation [Not Recovered/Not Resolved]

NARRATIVE: CASE EVENT DATE: 201901
